FAERS Safety Report 17075207 (Version 1)
Quarter: 2019Q4

REPORT INFORMATION
  Report Type: Spontaneous
  Country: IN (occurrence: IN)
  Receive Date: 20191126
  Receipt Date: 20191126
  Transmission Date: 20200122
  Serious: Yes (Other)
  Sender: FDA-Public Use
  Company Number: IN-KEDRION-2019-000306

PATIENT

DRUGS (1)
  1. RHOGAM ULTRA-FILTERED PLUS [Suspect]
     Active Substance: HUMAN RHO(D) IMMUNE GLOBULIN
     Indication: PROPHYLAXIS
     Dosage: 300 MICROGRAM, TOTAL

REACTIONS (1)
  - Haemolytic anaemia [Unknown]
